FAERS Safety Report 10237330 (Version 1)
Quarter: 2014Q2

REPORT INFORMATION
  Report Type: Spontaneous
  Country: SE (occurrence: SE)
  Receive Date: 20140613
  Receipt Date: 20140613
  Transmission Date: 20141212
  Serious: Yes (Other)
  Sender: FDA-Public Use
  Company Number: SE-ASTRAZENECA-2014SE39565

PATIENT
  Age: 28 Year
  Sex: Female
  Weight: 51 kg

DRUGS (3)
  1. PULMICORT TURBUHALER [Suspect]
     Indication: ASTHMA
     Route: 055
     Dates: start: 20140422, end: 20140521
  2. BRICANYL [Suspect]
     Route: 065
  3. AZALIA [Concomitant]
     Dosage: GEDEON RICHTER PLC

REACTIONS (10)
  - Headache [Recovered/Resolved with Sequelae]
  - Heart rate increased [Recovered/Resolved with Sequelae]
  - Heart rate irregular [Recovered/Resolved with Sequelae]
  - Palpitations [Recovered/Resolved with Sequelae]
  - Fatigue [Recovered/Resolved with Sequelae]
  - Anxiety [Recovered/Resolved with Sequelae]
  - Irritability [Recovered/Resolved with Sequelae]
  - Restlessness [Recovered/Resolved with Sequelae]
  - Lethargy [Unknown]
  - Nervousness [Unknown]
